FAERS Safety Report 13095534 (Version 2)
Quarter: 2017Q1

REPORT INFORMATION
  Report Type: Report from Study
  Country: None (occurrence: US)
  Receive Date: 20170108
  Receipt Date: 20170310
  Transmission Date: 20170428
  Serious: Yes (Hospitalization, Other)
  Sender: FDA-Public Use
  Company Number: US-ABBVIE-17K-163-1831061-00

PATIENT
  Sex: Male

DRUGS (1)
  1. HUMIRA [Suspect]
     Active Substance: ADALIMUMAB
     Indication: CROHN^S DISEASE
     Route: 058
     Dates: start: 20161024, end: 201611

REACTIONS (4)
  - Intestinal obstruction [Recovered/Resolved]
  - Gastrointestinal inflammation [Recovered/Resolved]
  - Drug ineffective [Unknown]
  - Intestinal perforation [Recovered/Resolved]
